FAERS Safety Report 5694397-2 (Version None)
Quarter: 2008Q2

REPORT INFORMATION
  Report Type: 
  Country: None (occurrence: None)
  Receive Date: 20080402
  Receipt Date: 20080226
  Transmission Date: 20081010
  Serious: Yes (Other)
  Sender: FDA-Public Use
  Company Number: 2008S1003339

PATIENT
  Age: 20 Year
  Sex: Male

DRUGS (1)
  1. NAPROXEN [Suspect]
     Indication: SUICIDE ATTEMPT
     Dosage: 5500 MG; TABLET; ORAL ; X1, ORAL
     Route: 048

REACTIONS (4)
  - ABDOMINAL PAIN UPPER [None]
  - INCORRECT DOSE ADMINISTERED [None]
  - PANCREATITIS ACUTE [None]
  - SUICIDE ATTEMPT [None]
